FAERS Safety Report 5502019-6 (Version None)
Quarter: 2007Q4

REPORT INFORMATION
  Report Type: 
  Country: None (occurrence: None)
  Receive Date: 20071030
  Receipt Date: 20071029
  Transmission Date: 20080405
  Serious: Yes (Other)
  Sender: FDA-Public Use
  Company Number: D0054734A

PATIENT
  Sex: Male

DRUGS (1)
  1. SULTANOL [Suspect]
     Route: 055

REACTIONS (3)
  - ASTHMA [None]
  - FOREIGN BODY ASPIRATION [None]
  - PHARMACEUTICAL PRODUCT COMPLAINT [None]
